FAERS Safety Report 7730943-2 (Version None)
Quarter: 2011Q3

REPORT INFORMATION
  Report Type: 
  Country: None (occurrence: None)
  Receive Date: 20110906
  Receipt Date: 20110829
  Transmission Date: 20111222
  Serious: Yes (Other)
  Sender: FDA-Public Use
  Company Number: CA-ALEXION PHARMACEUTICALS INC.-A201101323

PATIENT
  Sex: Male

DRUGS (6)
  1. FLUCONAZOLE [Concomitant]
     Dosage: 100 MG 2 X WEEK
     Route: 048
  2. SOLIRIS [Suspect]
     Indication: PAROXYSMAL NOCTURNAL HAEMOGLOBINURIA
     Dosage: 900 MG Q2W
     Route: 042
     Dates: start: 20110725
  3. RABEPRAZOLE SODIUM [Concomitant]
     Dosage: 20 MG QD
     Route: 048
  4. FERROUS SULFATE TAB [Concomitant]
     Dosage: 120 MG QD
     Route: 048
  5. PREDNISONE [Concomitant]
     Dosage: 40 MG QD
     Route: 048
  6. FOLIC ACID [Concomitant]
     Dosage: 5 MG QD
     Route: 048

REACTIONS (6)
  - HAEMOGLOBIN DECREASED [None]
  - OROPHARYNGEAL PAIN [None]
  - CHILLS [None]
  - HEADACHE [None]
  - PRODUCTIVE COUGH [None]
  - PYREXIA [None]
